FAERS Safety Report 7788953-5 (Version None)
Quarter: 2011Q3

REPORT INFORMATION
  Report Type: 
  Country: None (occurrence: None)
  Receive Date: 20110930
  Receipt Date: 20110920
  Transmission Date: 20111222
  Serious: Yes (Death, Life-Threatening, Hospitalization, Other)
  Sender: FDA-Public Use
  Company Number: AU-JNJFOC-20110805068

PATIENT
  Sex: Male
  Weight: 59.1 kg

DRUGS (36)
  1. METOCLOPRAMIDE [Concomitant]
     Indication: VOMITING
     Route: 065
  2. TEMAZEPAM [Concomitant]
     Indication: INSOMNIA
     Route: 065
     Dates: start: 20110804, end: 20110811
  3. ENOXAPARIN SODIUM [Concomitant]
     Indication: THROMBOSIS
     Route: 065
     Dates: start: 20110807, end: 20110812
  4. NYSTATIN [Concomitant]
     Indication: OROPHARYNGEAL PAIN
     Route: 065
     Dates: start: 20110816, end: 20110817
  5. ABIRATERONE ACETATE [Suspect]
     Indication: PROSTATE CANCER METASTATIC
     Route: 048
     Dates: start: 20110725, end: 20110816
  6. TAMSULOSIN HCL [Concomitant]
     Indication: POLLAKIURIA
     Route: 065
     Dates: start: 20110806, end: 20110812
  7. CALCIUM CARBONATE [Concomitant]
     Indication: HYPOCALCAEMIA
     Route: 065
     Dates: start: 20110804, end: 20110811
  8. DEXAMETHASONE [Concomitant]
     Route: 065
     Dates: start: 20110810, end: 20110811
  9. RABEPRAZOLE SODIUM [Concomitant]
     Indication: GASTROOESOPHAGEAL REFLUX DISEASE
     Route: 065
     Dates: start: 20110805, end: 20110812
  10. AGAROL LAXATIVE [Concomitant]
     Route: 065
     Dates: start: 20110807, end: 20110807
  11. METOCLOPRAMIDE [Concomitant]
     Indication: NAUSEA
     Route: 065
  12. AGAROL LAXATIVE [Concomitant]
     Indication: CONSTIPATION
     Route: 065
     Dates: start: 20110804, end: 20110804
  13. COLOXYL + SENNA [Concomitant]
     Indication: CONSTIPATION
     Route: 065
     Dates: start: 20110811, end: 20110812
  14. PREDNISONE [Suspect]
     Indication: PROSTATE CANCER METASTATIC
     Route: 065
     Dates: start: 20110725, end: 20110817
  15. DEXAMETHASONE [Concomitant]
     Route: 065
     Dates: start: 20110812, end: 20110816
  16. ACETAMINOPHEN [Concomitant]
     Indication: SPINAL FRACTURE
     Route: 065
     Dates: start: 20110804, end: 20110810
  17. NYSTATIN [Concomitant]
     Indication: ABDOMINAL PAIN UPPER
     Route: 065
     Dates: start: 20110816, end: 20110817
  18. ABIRATERONE ACETATE [Suspect]
     Route: 048
  19. MORPHINE [Concomitant]
     Indication: PATHOLOGICAL FRACTURE
     Route: 065
     Dates: start: 20110804, end: 20110804
  20. DEXAMETHASONE [Concomitant]
     Indication: PATHOLOGICAL FRACTURE
     Route: 065
     Dates: start: 20110804, end: 20110809
  21. RED BLOOD CELLS [Concomitant]
     Indication: ANAEMIA
     Route: 065
     Dates: start: 20110805
  22. SORBOLENE CREAM WITH 10% GLYCERINE [Concomitant]
     Indication: THERAPEUTIC PROCEDURE
     Route: 065
     Dates: start: 20110806, end: 20110812
  23. MOVIPREP [Concomitant]
     Route: 065
     Dates: start: 20110811, end: 20110812
  24. PROCHLORPERAZINE [Concomitant]
     Indication: NAUSEA
     Route: 065
     Dates: start: 20110807, end: 20110812
  25. COLOXYL + SENNA [Concomitant]
     Route: 065
     Dates: start: 20110805, end: 20110810
  26. MORPHINE SULFATE [Concomitant]
     Indication: SPINAL FRACTURE
     Route: 065
     Dates: start: 20110811, end: 20110812
  27. SODIUM BICARBONATE [Concomitant]
     Indication: DENTAL DISORDER PROPHYLAXIS
     Route: 048
     Dates: start: 20110805, end: 20110812
  28. MOVIPREP [Concomitant]
     Indication: CONSTIPATION
     Route: 065
     Dates: start: 20110805, end: 20110809
  29. CALCITRIOL [Concomitant]
     Indication: HYPOCALCAEMIA
     Route: 065
     Dates: start: 20110804, end: 20110812
  30. FENTANYL [Concomitant]
     Indication: PAIN
     Route: 065
     Dates: start: 20110101, end: 20110810
  31. LEUPROLIDE ACETATE [Concomitant]
     Indication: HORMONE THERAPY
     Route: 065
     Dates: start: 20081215
  32. METOCLOPRAMIDE [Concomitant]
     Indication: GASTROOESOPHAGEAL REFLUX DISEASE
     Route: 065
  33. XYLOCAINE [Concomitant]
     Indication: ABDOMINAL PAIN UPPER
     Route: 065
     Dates: start: 20110807, end: 20110808
  34. XYLOCAINE [Concomitant]
     Indication: OESOPHAGEAL PAIN
     Route: 065
     Dates: start: 20110807, end: 20110808
  35. MORPHINE SULFATE [Concomitant]
     Route: 065
     Dates: start: 20110804, end: 20110810
  36. NYSTATIN [Concomitant]
     Indication: OESOPHAGEAL PAIN
     Route: 065
     Dates: start: 20110816, end: 20110817

REACTIONS (3)
  - SPINAL FRACTURE [None]
  - LUNG INFECTION [None]
  - DISEASE PROGRESSION [None]
